FAERS Safety Report 4834452-X (Version None)
Quarter: 2005Q4

REPORT INFORMATION
  Report Type: 
  Country: None (occurrence: None)
  Receive Date: 20051122
  Receipt Date: 20041116
  Transmission Date: 20060501
  Serious: No
  Sender: FDA-Public Use
  Company Number: US-BRISTOL-MYERS SQUIBB COMPANY-12767695

PATIENT
  Age: 75 Year
  Sex: Male
  Weight: 76 kg

DRUGS (16)
  1. PRAVACHOL [Suspect]
     Indication: BLOOD CHOLESTEROL INCREASED
     Dosage: INITIALLY STARTED AT 20 MG 1/2 TAB DAILY, INCR TO 40 MG OD THEN DECR BACK TO 20 MG 1/2 TAB OD
     Route: 048
     Dates: start: 20040401
  2. PLAVIX [Concomitant]
  3. LOPRESSOR [Concomitant]
  4. PROSCAR [Concomitant]
  5. LEXAPRO [Concomitant]
  6. KLONOPIN [Concomitant]
  7. NITROGLYCERIN [Concomitant]
  8. COENZYME Q10 [Concomitant]
  9. VITAMIN B COMPLEX CAP [Concomitant]
  10. ASCORBIC ACID [Concomitant]
  11. VITAMIN D [Concomitant]
  12. VITAMIN E [Concomitant]
  13. FOLIC ACID [Concomitant]
  14. CHROMIUM PICOLINATE [Concomitant]
  15. OMEGA 3 FISH OIL [Concomitant]
  16. MEXILETINE HCL [Concomitant]

REACTIONS (1)
  - MYALGIA [None]
